FAERS Safety Report 25745157 (Version 2)
Quarter: 2025Q4

REPORT INFORMATION
  Report Type: Spontaneous
  Country: EU (occurrence: EU)
  Receive Date: 20250901
  Receipt Date: 20251009
  Transmission Date: 20260117
  Serious: Yes (Hospitalization, Other)
  Sender: NOVARTIS
  Company Number: None

PATIENT
  Age: 57 Year
  Sex: Male

DRUGS (1)
  1. GILENYA [Suspect]
     Active Substance: FINGOLIMOD HYDROCHLORIDE
     Indication: Multiple sclerosis
     Dosage: 0.5 MG, Q24H (GILENYA 0,5 MG 1 CP DIE)
     Route: 048
     Dates: start: 201303, end: 202503

REACTIONS (1)
  - Metastatic neoplasm [Recovered/Resolved]

NARRATIVE: CASE EVENT DATE: 20250424
